FAERS Safety Report 15314034 (Version 1)
Quarter: 2018Q3

REPORT INFORMATION
  Report Type: Spontaneous
  Country: US (occurrence: US)
  Receive Date: 20180824
  Receipt Date: 20180824
  Transmission Date: 20181010
  Serious: No
  Sender: FDA-Public Use
  Company Number: US-TEVA-2018-US-945990

PATIENT
  Sex: Female

DRUGS (1)
  1. COPAXONE [Suspect]
     Active Substance: GLATIRAMER ACETATE
     Indication: MULTIPLE SCLEROSIS
     Dosage: FORMSTRENGTH WAS UNKNOWN
     Route: 065

REACTIONS (4)
  - Heart rate increased [Unknown]
  - Nausea [Unknown]
  - Decreased appetite [Unknown]
  - Throat tightness [Unknown]
